FAERS Safety Report 7424105-6 (Version None)
Quarter: 2011Q2

REPORT INFORMATION
  Report Type: 
  Country: None (occurrence: None)
  Receive Date: 20110419
  Receipt Date: 20110405
  Transmission Date: 20111010
  Serious: Yes (Death, Hospitalization)
  Sender: FDA-Public Use
  Company Number: IL-CELGENEUS-082-C5013-09101399

PATIENT
  Sex: Male
  Weight: 89 kg

DRUGS (7)
  1. MORPHINE [Concomitant]
     Dosage: 4 MILLIGRAM
     Route: 055
     Dates: start: 20091012, end: 20091012
  2. PREDNISONE [Suspect]
     Indication: MULTIPLE MYELOMA
     Dosage: 2 MILLIGRAM/KILOGRAM
     Route: 048
     Dates: start: 20080320, end: 20081116
  3. PLACEBO FOR CC-5013 [Suspect]
     Indication: MULTIPLE MYELOMA
     Route: 048
  4. MELPHALAN [Suspect]
     Indication: MULTIPLE MYELOMA
     Dosage: .18 MILLIGRAM/KILOGRAM
     Route: 048
     Dates: start: 20080320, end: 20081116
  5. FUROSEMIDE [Concomitant]
     Route: 051
     Dates: start: 20091012, end: 20091012
  6. IPRATROPIUM BROMIDE [Concomitant]
     Route: 055
     Dates: start: 20091012, end: 20091012
  7. LENALIDOMIDE [Suspect]
     Indication: MULTIPLE MYELOMA
     Dosage: 25 MILLIGRAM
     Route: 048
     Dates: start: 20090924, end: 20091011

REACTIONS (1)
  - SEPSIS [None]
